FAERS Safety Report 17173083 (Version 1)
Quarter: 2019Q4

REPORT INFORMATION
  Report Type: Report from Study
  Country: GB (occurrence: GB)
  Receive Date: 20191219
  Receipt Date: 20191219
  Transmission Date: 20200122
  Serious: Yes (Hospitalization)
  Sender: FDA-Public Use
  Company Number: GB-AMGEN-GBRSL2019210173

PATIENT
  Age: 47 Year
  Sex: Female

DRUGS (1)
  1. AMGEVITA [Suspect]
     Active Substance: ADALIMUMAB
     Indication: CROHN^S DISEASE
     Dosage: 40 MILLIGRAM, Q2WK
     Route: 065

REACTIONS (4)
  - Unevaluable event [Unknown]
  - Product storage error [Unknown]
  - Headache [Unknown]
  - Tooth disorder [Unknown]

NARRATIVE: CASE EVENT DATE: 20191213
